FAERS Safety Report 6096618-3 (Version None)
Quarter: 2009Q1

REPORT INFORMATION
  Report Type: 
  Country: None (occurrence: None)
  Receive Date: 20090227
  Receipt Date: 20090223
  Transmission Date: 20090719
  Serious: Yes (Other)
  Sender: FDA-Public Use
  Company Number: US-ASTRAZENECA-2009UW05027

PATIENT
  Age: 86 Year
  Sex: Female
  Weight: 53.1 kg

DRUGS (5)
  1. CRESTOR [Suspect]
     Route: 048
     Dates: start: 20081201, end: 20090123
  2. WARFARIN [Concomitant]
  3. CALCITRIOL [Concomitant]
  4. AMLODIPINE [Concomitant]
  5. DIOVAN [Concomitant]

REACTIONS (5)
  - MUSCLE DISORDER [None]
  - MUSCULOSKELETAL STIFFNESS [None]
  - PYREXIA [None]
  - VISUAL IMPAIRMENT [None]
  - WEIGHT DECREASED [None]
